FAERS Safety Report 18310049 (Version 2)
Quarter: 2023Q2

REPORT INFORMATION
  Report Type: Spontaneous
  Country: DE (occurrence: DE)
  Receive Date: 20200925
  Receipt Date: 20230412
  Transmission Date: 20230722
  Serious: Yes (Hospitalization)
  Sender: FDA-Public Use
  Company Number: DE-ADRED-05539-01

PATIENT
  Age: 85 Year
  Sex: Female
  Weight: 75.6 kg

DRUGS (8)
  1. METOPROLOL [Suspect]
     Active Substance: METOPROLOL
     Indication: Product used for unknown indication
     Dosage: 47.5 MG, 1-0-1-0, TABLETTEN
     Route: 048
  2. FEBUXOSTAT [Suspect]
     Active Substance: FEBUXOSTAT
     Indication: Product used for unknown indication
     Dosage: 80 MG, 0-0-0-1, TABLETTEN
     Route: 048
  3. TORSEMIDE [Suspect]
     Active Substance: TORSEMIDE
     Indication: Product used for unknown indication
     Dosage: 5 MG, 0-1-0-0, TABLETTEN
     Route: 048
  4. METAMIZOL [Suspect]
     Active Substance: METAMIZOLE SODIUM
     Indication: Product used for unknown indication
     Dosage: 500 MG, BEI BEDARF, TABLETTEN
     Route: 048
  5. ASPIRIN [Concomitant]
     Active Substance: ASPIRIN
     Indication: Product used for unknown indication
     Dosage: 100 MG, 0-1-0-0, TABLETTEN
     Route: 048
  6. CHOLECALCIFEROL [Concomitant]
     Active Substance: CHOLECALCIFEROL
     Indication: Product used for unknown indication
     Dosage: 2000 IE, 0-1-0-0, KAPSELN
     Route: 048
  7. Wobenzym [Concomitant]
     Indication: Product used for unknown indication
     Dosage: NK MG, 2-2-2-0
     Route: 048
  8. Selenase 300 RP [Concomitant]
     Indication: Product used for unknown indication
     Dosage: 300 MG, 1-0-0-0, TABLETTEN
     Route: 048

REACTIONS (2)
  - Fall [Unknown]
  - Syncope [Unknown]
